FAERS Safety Report 25920153 (Version 1)
Quarter: 2025Q4

REPORT INFORMATION
  Report Type: Spontaneous
  Country: US (occurrence: None)
  Receive Date: 20251013
  Receipt Date: 20251013
  Transmission Date: 20260117
  Serious: Yes (Other)
  Sender: FDA-CTU
  Company Number: None

PATIENT
  Age: 3 Year
  Sex: Female
  Weight: 14.85 kg

DRUGS (4)
  1. YCANTH [Suspect]
     Active Substance: CANTHARIDIN
  2. TYLENOL [Concomitant]
     Active Substance: ACETAMINOPHEN
  3. MOTRIN [Concomitant]
     Active Substance: IBUPROFEN
  4. Gruns multivitamins [Concomitant]

REACTIONS (2)
  - Blister [None]
  - Product use issue [None]

NARRATIVE: CASE EVENT DATE: 20250929
